FAERS Safety Report 9671393 (Version 1)
Quarter: 2013Q4

REPORT INFORMATION
  Report Type: Spontaneous
  Country: US (occurrence: None)
  Receive Date: 20131105
  Receipt Date: 20131105
  Transmission Date: 20140711
  Serious: Yes (Disabling)
  Sender: FDA-Public Use
  Company Number: None

PATIENT
  Age: 20 Year
  Sex: Male

DRUGS (1)
  1. ADDERALL [Suspect]
     Indication: ATTENTION DEFICIT/HYPERACTIVITY DISORDER
     Dates: start: 20131021, end: 20131104

REACTIONS (6)
  - Hyperhidrosis [None]
  - Anxiety [None]
  - Insomnia [None]
  - Drug effect decreased [None]
  - Product substitution issue [None]
  - Product quality issue [None]
